FAERS Safety Report 8973409 (Version 2)
Quarter: 2012Q4

REPORT INFORMATION
  Report Type: 
  Country: DE (occurrence: DE)
  Receive Date: 20121218
  Receipt Date: 20121228
  Transmission Date: 20130627
  Serious: Yes (Hospitalization, Other)
  Sender: FDA-Public Use
  Company Number: DE-ALEXION PHARMACEUTICALS INC.-A201202413

PATIENT
  Age: 74 None
  Sex: Female
  Weight: 62 kg

DRUGS (9)
  1. SOLIRIS 300MG [Suspect]
     Indication: PAROXYSMAL NOCTURNAL HAEMOGLOBINURIA
     Dosage: 1200 mg, UNK
     Route: 042
     Dates: start: 201009
  2. SOLIRIS 300MG [Suspect]
     Dosage: 900 mg, q2w
     Route: 042
  3. SOLIRIS 300MG [Suspect]
     Dosage: 1200 mg, UNK
     Route: 042
     Dates: start: 201111
  4. BISOPROLOL [Concomitant]
  5. AMIODARONE [Concomitant]
  6. VIGANTOLETTEN [Concomitant]
  7. XARELTO [Concomitant]
     Dosage: 15 mg, UNK
  8. ZITROMAX [Concomitant]
  9. AMBROXOL [Concomitant]

REACTIONS (7)
  - Aspartate aminotransferase increased [Not Recovered/Not Resolved]
  - Alanine aminotransferase increased [Unknown]
  - Gamma-glutamyltransferase increased [Unknown]
  - Serum ferritin increased [Unknown]
  - Blood bilirubin increased [Unknown]
  - Upper respiratory tract infection [Unknown]
  - Antimitochondrial antibody positive [Unknown]
